FAERS Safety Report 8429741-6 (Version None)
Quarter: 2012Q2

REPORT INFORMATION
  Report Type: 
  Country: None (occurrence: None)
  Receive Date: 20120612
  Receipt Date: 20120607
  Transmission Date: 20120825
  Serious: Yes (Other)
  Sender: FDA-Public Use
  Company Number: AU-PFIZER INC-2012137681

PATIENT
  Sex: Male

DRUGS (1)
  1. CADUET [Suspect]
     Dosage: UNK

REACTIONS (2)
  - GINGIVITIS [None]
  - TOOTH DISORDER [None]
